FAERS Safety Report 8941823 (Version 1)
Quarter: 2012Q4

REPORT INFORMATION
  Report Type: 
  Country: GB (occurrence: GB)
  Receive Date: 20121203
  Receipt Date: 20121203
  Transmission Date: 20130627
  Serious: Yes (Other)
  Sender: FDA-Public Use
  Company Number: GB-B.I. PHARMACEUTICALS,INC./RIDGEFIELD-2012-UK-01843UK

PATIENT
  Age: 57 Year
  Sex: Female
  Weight: 90 kg

DRUGS (5)
  1. DABIGATRAN [Suspect]
     Indication: ATRIAL FIBRILLATION
     Dosage: 110 mg
     Route: 048
     Dates: start: 20120910, end: 20121102
  2. DIAZEPAM [Concomitant]
  3. EZETIMIBE [Concomitant]
  4. LANSOPRAZOLE [Concomitant]
  5. ZOPICLONE [Concomitant]

REACTIONS (4)
  - Gastrooesophageal reflux disease [Recovered/Resolved]
  - Flatulence [Recovered/Resolved]
  - Irritable bowel syndrome [Recovered/Resolved]
  - Arthralgia [Not Recovered/Not Resolved]
